FAERS Safety Report 8438081 (Version 2)
Quarter: 2013Q4

REPORT INFORMATION
  Report Type: Spontaneous
  Country: JP (occurrence: JP)
  Receive Date: 20120302
  Receipt Date: 20131009
  Transmission Date: 20140711
  Serious: Yes (Death, Life-Threatening, Hospitalization)
  Sender: FDA-Public Use
  Company Number: JP-ELI_LILLY_AND_COMPANY-JP201108005506

PATIENT
  Age: 77 Year
  Sex: Male
  Weight: 52 kg

DRUGS (2)
  1. GEMZAR [Suspect]
     Indication: PANCREATIC CARCINOMA
     Dosage: 1570 MG, UNK
     Route: 042
     Dates: start: 20100119, end: 20100316
  2. SEROTONE [Concomitant]
     Indication: PROPHYLAXIS
     Dosage: UNK
     Dates: start: 20100119, end: 20100316

REACTIONS (3)
  - Sepsis [Fatal]
  - Cholangitis [Fatal]
  - Interstitial lung disease [Recovering/Resolving]
